FAERS Safety Report 15276674 (Version 1)
Quarter: 2018Q3

REPORT INFORMATION
  Report Type: Spontaneous
  Country: US (occurrence: US)
  Receive Date: 20180729
  Receipt Date: 20180729
  Transmission Date: 20181010
  Serious: No
  Sender: FDA-Public Use
  Company Number: None

PATIENT
  Age: 56 Year
  Sex: Female
  Weight: 99 kg

DRUGS (1)
  1. CIPRO [Suspect]
     Active Substance: CIPROFLOXACIN HYDROCHLORIDE
     Indication: URINARY TRACT INFECTION
     Route: 048

REACTIONS (19)
  - Eye disorder [None]
  - Gastric disorder [None]
  - Depression [None]
  - Burning sensation [None]
  - Gait inability [None]
  - Back pain [None]
  - Photosensitivity reaction [None]
  - Anxiety [None]
  - Arthralgia [None]
  - Feeling of body temperature change [None]
  - Feeling abnormal [None]
  - Headache [None]
  - Tendon pain [None]
  - Asthenia [None]
  - Pain in extremity [None]
  - Myalgia [None]
  - Paraesthesia [None]
  - Plantar fasciitis [None]
  - Renal pain [None]

NARRATIVE: CASE EVENT DATE: 20180330
